FAERS Safety Report 6614939-X (Version None)
Quarter: 2010Q1

REPORT INFORMATION
  Report Type: 
  Country: None (occurrence: None)
  Receive Date: 20100305
  Receipt Date: 20100115
  Transmission Date: 20100710
  Serious: Yes (Other)
  Sender: FDA-Public Use
  Company Number: US-JNJFOC-20091001684

PATIENT
  Sex: Male
  Weight: 113.4 kg

DRUGS (1)
  1. LEVAQUIN [Suspect]
     Indication: LOCALISED INFECTION
     Route: 048
     Dates: start: 20090615, end: 20090621

REACTIONS (5)
  - ARTHRALGIA [None]
  - EPICONDYLITIS [None]
  - JOINT INJURY [None]
  - ROTATOR CUFF SYNDROME [None]
  - TENDONITIS [None]
